FAERS Safety Report 6122748-3 (Version None)
Quarter: 2009Q1

REPORT INFORMATION
  Report Type: 
  Country: None (occurrence: None)
  Receive Date: 20090318
  Receipt Date: 20090113
  Transmission Date: 20090719
  Serious: Yes (Other)
  Sender: FDA-Public Use
  Company Number: US-AMGEN-QUU328229

PATIENT
  Sex: Female

DRUGS (10)
  1. NEUPOGEN [Suspect]
     Indication: NEUTROPENIA
     Dates: start: 20081205, end: 20081208
  2. NEULASTA [Suspect]
     Indication: CHEMOTHERAPY
     Route: 065
  3. GEMZAR [Concomitant]
  4. CISPLATIN [Concomitant]
  5. DIOVAN [Concomitant]
  6. NOVOLIN N [Concomitant]
  7. NOVOLOG [Concomitant]
  8. COUMADIN [Concomitant]
  9. PREDNISONE [Concomitant]
  10. FOLIC ACID [Concomitant]

REACTIONS (2)
  - RASH MACULAR [None]
  - RHEUMATOID ARTHRITIS [None]
